FAERS Safety Report 8338575-2 (Version None)
Quarter: 2012Q2

REPORT INFORMATION
  Report Type: 
  Country: None (occurrence: None)
  Receive Date: 20120504
  Receipt Date: 20120423
  Transmission Date: 20120825
  Serious: Yes (Hospitalization)
  Sender: FDA-Public Use
  Company Number: HU-BAXTER-2012BAX004261

PATIENT
  Age: 60 Year
  Sex: Female

DRUGS (6)
  1. DIANEAL PD-1 W/ DEXTROSE 1.5% IN PLASTIC CONTAINER [Suspect]
     Route: 033
     Dates: start: 20050506
  2. EXTRANEAL [Suspect]
     Route: 033
     Dates: start: 20060506
  3. VITAMIN D [Concomitant]
     Route: 065
  4. EPOGEN [Concomitant]
     Route: 065
  5. IRON [Concomitant]
     Route: 042
  6. INSULIN [Concomitant]
     Route: 065

REACTIONS (1)
  - GASTRIC ANTRAL VASCULAR ECTASIA [None]
